FAERS Safety Report 19676141 (Version 1)
Quarter: 2021Q3

REPORT INFORMATION
  Report Type: Spontaneous
  Country: JP (occurrence: JP)
  Receive Date: 20210809
  Receipt Date: 20210809
  Transmission Date: 20211014
  Serious: Yes (Other)
  Sender: FDA-Public Use
  Company Number: JP-PFIZER INC-202100911721

PATIENT
  Sex: Female

DRUGS (1)
  1. ATARAX?P [Suspect]
     Active Substance: HYDROXYZINE HYDROCHLORIDE

REACTIONS (3)
  - Drug hypersensitivity [Unknown]
  - Eczema [Unknown]
  - Syncope [Unknown]
